FAERS Safety Report 8821089 (Version 1)
Quarter: 2012Q4

REPORT INFORMATION
  Report Type: 
  Country: BE (occurrence: BE)
  Receive Date: 20121002
  Receipt Date: 20121002
  Transmission Date: 20130627
  Serious: Yes (Other)
  Sender: FDA-Public Use
  Company Number: BE-ROCHE-1136287

PATIENT
  Age: 66 Year
  Sex: Female

DRUGS (6)
  1. AVASTIN [Suspect]
     Indication: METASTASES TO LIVER
     Route: 065
  2. AVASTIN [Suspect]
     Indication: METASTASES TO BONE
  3. AVASTIN [Suspect]
     Indication: METASTASES TO LYMPH NODES
  4. XELODA [Suspect]
     Indication: METASTASES TO LIVER
     Route: 065
  5. XELODA [Suspect]
     Indication: METASTASES TO BONE
  6. XELODA [Suspect]
     Indication: METASTASES TO LYMPH NODES

REACTIONS (3)
  - Painful respiration [Unknown]
  - Fatigue [Unknown]
  - Musculoskeletal pain [Unknown]
